FAERS Safety Report 15375377 (Version 2)
Quarter: 2018Q4

REPORT INFORMATION
  Report Type: Spontaneous
  Country: US (occurrence: US)
  Receive Date: 20180912
  Receipt Date: 20181019
  Transmission Date: 20190204
  Serious: No
  Sender: FDA-Public Use
  Company Number: US-SA-2018SA252298

PATIENT
  Age: 50 Year
  Sex: Female
  Weight: 81.6 kg

DRUGS (2)
  1. XYZAL ALLERGY 24HR [Suspect]
     Active Substance: LEVOCETIRIZINE DIHYDROCHLORIDE
     Indication: HYPERSENSITIVITY
     Dosage: UNK, UNK
     Route: 065
  2. LOPERAMIDE [Concomitant]
     Active Substance: LOPERAMIDE
     Indication: DIARRHOEA
     Dosage: UNK UNK, UNK
     Route: 065

REACTIONS (3)
  - Somnolence [Unknown]
  - Impaired work ability [Recovered/Resolved]
  - Malaise [Recovered/Resolved]
